FAERS Safety Report 8172113-2 (Version None)
Quarter: 2012Q1

REPORT INFORMATION
  Report Type: 
  Country: None (occurrence: None)
  Receive Date: 20120228
  Receipt Date: 20120213
  Transmission Date: 20120608
  Serious: Yes (Hospitalization)
  Sender: FDA-Public Use
  Company Number: SE-BAUSCH-2012BL001018

PATIENT
  Age: 76 Year
  Sex: Female

DRUGS (6)
  1. LOSARTAN POTASSIUM [Concomitant]
  2. LEVOTHYROXINE SODIUM [Concomitant]
     Route: 048
  3. BISOPROLOL FUMARATE [Concomitant]
  4. WARFARIN SODIUM [Concomitant]
  5. TROPICAMIDE [Suspect]
     Indication: HYPERTENSION
     Route: 047
     Dates: start: 20110131
  6. OXAZEPAM [Concomitant]
     Route: 048

REACTIONS (2)
  - DIZZINESS [None]
  - CHEST PAIN [None]
